FAERS Safety Report 8603610 (Version 3)
Quarter: 2012Q4

REPORT INFORMATION
  Report Type: Report from Study
  Country: CA (occurrence: CA)
  Receive Date: 20120607
  Receipt Date: 20121022
  Transmission Date: 20130627
  Serious: Yes (Hospitalization, Other)
  Sender: FDA-Public Use
  Company Number: CA-ROCHE-1074782

PATIENT
  Age: 73 Year
  Sex: Male

DRUGS (6)
  1. VEMURAFENIB [Suspect]
     Indication: METASTATIC MALIGNANT MELANOMA
     Route: 048
     Dates: start: 201205, end: 201210
  2. HYDROCHLOROTHIAZIDE [Concomitant]
  3. NORVASC [Concomitant]
  4. PANTOPRAZOLE [Concomitant]
  5. PRAVASTATIN [Concomitant]
  6. FRAGMIN [Concomitant]
     Route: 065
     Dates: start: 20120513

REACTIONS (5)
  - Pulmonary embolism [Unknown]
  - Dehydration [Unknown]
  - Visual impairment [Not Recovered/Not Resolved]
  - Dizziness [Not Recovered/Not Resolved]
  - Disease progression [Not Recovered/Not Resolved]
